FAERS Safety Report 17860581 (Version 1)
Quarter: 2020Q2

REPORT INFORMATION
  Report Type: Spontaneous
  Country: US (occurrence: US)
  Receive Date: 20200604
  Receipt Date: 20200604
  Transmission Date: 20200714
  Serious: No
  Sender: FDA-Public Use
  Company Number: US-SA-2020SA141713

PATIENT

DRUGS (4)
  1. METHYLPRED [Concomitant]
     Active Substance: METHYLPREDNISOLONE
  2. TRIAMCINOLON [TRIAMCINOLONE ACETONIDE] [Concomitant]
  3. AMOXICILLIN. [Concomitant]
     Active Substance: AMOXICILLIN
  4. DUPIXENT [Suspect]
     Active Substance: DUPILUMAB
     Indication: DERMATITIS
     Dosage: 300 MG, QOW
     Route: 058
     Dates: start: 20180328

REACTIONS (1)
  - Rash [Not Recovered/Not Resolved]

NARRATIVE: CASE EVENT DATE: 20200516
